FAERS Safety Report 10475439 (Version 1)
Quarter: 2014Q3

REPORT INFORMATION
  Report Type: Spontaneous
  Country: US (occurrence: None)
  Receive Date: 20140924
  Receipt Date: 20140924
  Transmission Date: 20150326
  Serious: Yes (Disabling)
  Sender: FDA-Public Use
  Company Number: None

PATIENT
  Age: 36 Year
  Sex: Male
  Weight: 70.31 kg

DRUGS (1)
  1. ONYX [Suspect]
     Active Substance: DEVICE
     Indication: HAEMORRHAGE
     Dosage: FOR LIFE IMPLANT

REACTIONS (1)
  - Procedural pain [None]

NARRATIVE: CASE EVENT DATE: 20130917
